FAERS Safety Report 10985207 (Version 1)
Quarter: 2015Q2

REPORT INFORMATION
  Report Type: Spontaneous
  Country: US (occurrence: US)
  Receive Date: 20150404
  Receipt Date: 20150404
  Transmission Date: 20150821
  Serious: No
  Sender: FDA-Public Use
  Company Number: US-SA-2014SA059111

PATIENT
  Age: 43 Year
  Sex: Female

DRUGS (2)
  1. ALLEGRA-D [Suspect]
     Active Substance: FEXOFENADINE\PSEUDOEPHEDRINE
     Indication: SNEEZING
     Dosage: DOES: 180/240 MG
     Route: 048
     Dates: start: 20140425
  2. ALLEGRA-D [Suspect]
     Active Substance: FEXOFENADINE\PSEUDOEPHEDRINE
     Indication: RHINORRHOEA
     Dosage: DOES: 180/240 MG
     Route: 048
     Dates: start: 20140425

REACTIONS (1)
  - Sinus headache [Not Recovered/Not Resolved]
